FAERS Safety Report 21785183 (Version 1)
Quarter: 2022Q4

REPORT INFORMATION
  Report Type: Spontaneous
  Country: NL (occurrence: NL)
  Receive Date: 20221227
  Receipt Date: 20221227
  Transmission Date: 20230113
  Serious: Yes (Other)
  Sender: FDA-Public Use
  Company Number: None

PATIENT
  Sex: Male
  Weight: 73 kg

DRUGS (1)
  1. LEQVIO [Suspect]
     Active Substance: INCLISIRAN SODIUM
     Indication: Hypercholesterolaemia
     Dosage: 1 DOSAGE FORM (EENMALIG 1 STUK)
     Route: 065
     Dates: start: 20220929, end: 20221030

REACTIONS (2)
  - Ventricular tachycardia [Recovering/Resolving]
  - Ventricular extrasystoles [Recovering/Resolving]
